FAERS Safety Report 5842471-X (Version None)
Quarter: 2008Q3

REPORT INFORMATION
  Report Type: 
  Country: None (occurrence: None)
  Receive Date: 20080808
  Receipt Date: 20080709
  Transmission Date: 20090109
  Serious: Yes (Hospitalization)
  Sender: FDA-Public Use
  Company Number: 2008-00770FE

PATIENT
  Age: 8 Year
  Sex: Male

DRUGS (6)
  1. TEV-TROPIN [Suspect]
     Indication: GROWTH HORMONE DEFICIENCY
     Dosage: 1 MG QW SC
     Route: 058
     Dates: start: 20080215, end: 20080610
  2. ENALAPRIL MALEATE [Suspect]
     Indication: HYPERTENSION
  3. BICITRA /00586801/ [Concomitant]
  4. VITAMIN A [Concomitant]
  5. CALCITRIOL [Concomitant]
  6. IRON [Concomitant]

REACTIONS (2)
  - ANAEMIA [None]
  - RENAL FAILURE ACUTE [None]
